FAERS Safety Report 5326515-X (Version None)
Quarter: 2007Q2

REPORT INFORMATION
  Report Type: 
  Country: None (occurrence: None)
  Receive Date: 20070510
  Receipt Date: 20070430
  Transmission Date: 20071010
  Serious: Yes (Other)
  Sender: FDA-Public Use
  Company Number: 07H-163-0312541-00

PATIENT
  Age: 55 Year
  Sex: Male

DRUGS (4)
  1. MORPHINE SULFATE INJ [Suspect]
     Indication: ANALGESIC EFFECT
     Dosage: SEE IMAGE
     Route: 037
     Dates: start: 19890831
  2. MORPHINE SULFATE INJ [Suspect]
     Indication: MUSCLE SPASMS
     Dosage: SEE IMAGE
     Route: 037
     Dates: start: 19890831
  3. MORPHINE SULFATE INJ [Suspect]
     Indication: ANALGESIC EFFECT
     Dosage: SEE IMAGE
     Route: 037
     Dates: start: 19900401
  4. MORPHINE SULFATE INJ [Suspect]
     Indication: MUSCLE SPASMS
     Dosage: SEE IMAGE
     Route: 037
     Dates: start: 19900401

REACTIONS (2)
  - GRANULOMA [None]
  - SPINAL CORD COMPRESSION [None]
